FAERS Safety Report 8853752 (Version 1)
Quarter: 2012Q4

REPORT INFORMATION
  Report Type: 
  Country: FR (occurrence: FR)
  Receive Date: 20121022
  Receipt Date: 20121022
  Transmission Date: 20130627
  Serious: Yes (Other)
  Sender: FDA-Public Use
  Company Number: FR-GE HEALTHCARE MEDICAL DIAGNOSTICS-OMPQ-NO-1210S-1096

PATIENT
  Age: 64 Year
  Sex: Female

DRUGS (1)
  1. OMNIPAQUE [Suspect]
     Indication: PRODUCT USED FOR UNKNOWN INDICATION
     Route: 042
     Dates: start: 20120924, end: 20120924

REACTIONS (2)
  - Extravasation [Recovered/Resolved]
  - No adverse event [Recovered/Resolved]
